FAERS Safety Report 6158280-0 (Version None)
Quarter: 2009Q2

REPORT INFORMATION
  Report Type: 
  Country: None (occurrence: None)
  Receive Date: 20090417
  Receipt Date: 20080204
  Transmission Date: 20091009
  Serious: Yes (Other)
  Sender: FDA-Public Use
  Company Number: US-ASTRAZENECA-2008UW00667

PATIENT
  Age: 19903 Day
  Sex: Male
  Weight: 124.3 kg

DRUGS (21)
  1. SEROQUEL [Suspect]
     Indication: SCHIZOPHRENIA
     Dosage: 25 MG, 50 MG, 100 MG
     Route: 048
     Dates: start: 20030713
  2. SEROQUEL [Suspect]
     Indication: PSYCHOTIC DISORDER
     Dosage: 25 MG, 50 MG, 100 MG
     Route: 048
     Dates: start: 20030713
  3. SEROQUEL [Suspect]
     Indication: DEPRESSION
     Dosage: 25 MG, 50 MG, 100 MG
     Route: 048
     Dates: start: 20030713
  4. SEROQUEL [Suspect]
     Dosage: 25-50 MG
     Route: 048
     Dates: start: 20010427
  5. SEROQUEL [Suspect]
     Dosage: 25-50 MG
     Route: 048
     Dates: start: 20010427
  6. SEROQUEL [Suspect]
     Dosage: 25-50 MG
     Route: 048
     Dates: start: 20010427
  7. CLARITIN [Concomitant]
  8. ZESTORETIC [Concomitant]
  9. NORVASC [Concomitant]
  10. EXELON [Concomitant]
  11. ZOLOFT [Concomitant]
  12. ALBUTEROL [Concomitant]
  13. ZYLOPRIM [Concomitant]
  14. SEREVENT [Concomitant]
  15. FLOVENT [Concomitant]
  16. ACULAR [Concomitant]
  17. THEO [Concomitant]
  18. IPRATROPIUM BROMIDE [Concomitant]
  19. INDOMETHACIN [Concomitant]
  20. KETOCONAZOLE [Concomitant]
  21. AMBIEN [Concomitant]

REACTIONS (11)
  - ANGINA PECTORIS [None]
  - BLOOD CHOLESTEROL INCREASED [None]
  - CATARACT [None]
  - DEMENTIA ALZHEIMER'S TYPE [None]
  - DEPRESSION [None]
  - DIABETES MELLITUS [None]
  - HYPERTENSION [None]
  - INSOMNIA [None]
  - MENTAL DISABILITY [None]
  - MOOD DISORDER DUE TO A GENERAL MEDICAL CONDITION [None]
  - SCHIZOPHRENIA [None]
